FAERS Safety Report 20091729 (Version 3)
Quarter: 2021Q4

REPORT INFORMATION
  Report Type: Spontaneous
  Country: DE (occurrence: DE)
  Receive Date: 20211119
  Receipt Date: 20211201
  Transmission Date: 20220304
  Serious: Yes (Life-Threatening, Other)
  Sender: FDA-Public Use
  Company Number: DE-DCGMA-21192703

PATIENT
  Age: 13 Year
  Sex: Male
  Weight: 63 kg

DRUGS (3)
  1. IBUPROFEN [Suspect]
     Active Substance: IBUPROFEN
     Indication: Local reaction
     Dosage: 300 MILLIGRAM
     Route: 048
     Dates: start: 20210807
  2. COMIRNATY [Suspect]
     Active Substance: TOZINAMERAN
     Indication: Immunisation
     Dosage: 0.3 MILLILITER, TOTAL, DOSE NUMBER UNKNOWN, 0.3 ML, SINGLE
     Route: 030
     Dates: start: 20210806, end: 20210806
  3. COMIRNATY [Suspect]
     Active Substance: TOZINAMERAN
     Indication: COVID-19 immunisation

REACTIONS (1)
  - Asthma [Recovered/Resolved]

NARRATIVE: CASE EVENT DATE: 20210807
